FAERS Safety Report 10625094 (Version 2)
Quarter: 2014Q4

REPORT INFORMATION
  Report Type: Spontaneous
  Country: US (occurrence: None)
  Receive Date: 20141128
  Receipt Date: 20141128
  Transmission Date: 20150529
  Serious: Yes (Death, Hospitalization)
  Sender: FDA-Public Use
  Company Number: US-145593

PATIENT
  Age: 82 Year
  Sex: Female
  Weight: 80.29 kg

DRUGS (5)
  1. METOPROLOL [Concomitant]
     Active Substance: METOPROLOL
  2. AMLODIPINE [Concomitant]
     Active Substance: AMLODIPINE BESYLATE
  3. SIMVASTIN [Concomitant]
     Active Substance: SIMVASTATIN
  4. WINRHO SDF LIQUID [Suspect]
     Active Substance: HUMAN RHO(D) IMMUNE GLOBULIN
     Indication: THROMBOCYTOPENIC PURPURA
     Route: 040
     Dates: start: 20141112, end: 20141112
  5. CANDESARTAN [Concomitant]
     Active Substance: CANDESARTAN

REACTIONS (17)
  - Intravascular haemolysis [None]
  - Shock [None]
  - Metabolic acidosis [None]
  - No therapeutic response [None]
  - Bradycardia [None]
  - Acute coronary syndrome [None]
  - Respiratory failure [None]
  - Urinary tract infection [None]
  - Hypertension [None]
  - Cardiac arrest [None]
  - Renal failure [None]
  - Acute myocardial infarction [None]
  - Prothrombin time prolonged [None]
  - Thrombocytopenia [None]
  - Anaemia [None]
  - Haemodialysis [None]
  - Sepsis [None]

NARRATIVE: CASE EVENT DATE: 20141112
